FAERS Safety Report 18610755 (Version 1)
Quarter: 2020Q4

REPORT INFORMATION
  Report Type: Spontaneous
  Country: US (occurrence: US)
  Receive Date: 20201214
  Receipt Date: 20201214
  Transmission Date: 20210114
  Serious: No
  Sender: FDA-Public Use
  Company Number: US-ITALFARMACO SPA-2102948

PATIENT
  Age: 59 Year
  Sex: Female

DRUGS (20)
  1. HYDROCHLOROTHIAZIDE. [Concomitant]
     Active Substance: HYDROCHLOROTHIAZIDE
  2. POTASSIUM CITRATE. [Concomitant]
     Active Substance: POTASSIUM CITRATE
  3. BUPROPION. [Concomitant]
     Active Substance: BUPROPION
  4. MELATONIN [Concomitant]
     Active Substance: MELATONIN
  5. TIGLUTIK [Suspect]
     Active Substance: RILUZOLE
     Indication: AMYOTROPHIC LATERAL SCLEROSIS
     Route: 048
     Dates: start: 20200922, end: 20200927
  6. SUMATRIPTAN. [Concomitant]
     Active Substance: SUMATRIPTAN
  7. SYNTHROID [Concomitant]
     Active Substance: LEVOTHYROXINE SODIUM
  8. DULOXETINE. [Concomitant]
     Active Substance: DULOXETINE
  9. LORAZEPAM. [Concomitant]
     Active Substance: LORAZEPAM
  10. LIDOCAINE. [Concomitant]
     Active Substance: LIDOCAINE
  11. ONDANSETRON [Concomitant]
     Active Substance: ONDANSETRON
  12. TRAMADOL. [Concomitant]
     Active Substance: TRAMADOL
  13. CLONIDINE. [Concomitant]
     Active Substance: CLONIDINE
  14. VITAMIN D [Concomitant]
     Active Substance: VITAMIN D NOS
  15. BACLOFEN. [Concomitant]
     Active Substance: BACLOFEN
  16. OMEPRAZOLE. [Concomitant]
     Active Substance: OMEPRAZOLE
  17. REQUIP [Concomitant]
     Active Substance: ROPINIROLE HYDROCHLORIDE
  18. MEXILETINE HCL [Concomitant]
     Active Substance: MEXILETINE HYDROCHLORIDE
  19. METOPROLOL. [Concomitant]
     Active Substance: METOPROLOL
  20. LOSARTAN. [Concomitant]
     Active Substance: LOSARTAN

REACTIONS (3)
  - Nausea [Recovered/Resolved]
  - Abdominal pain upper [Recovered/Resolved]
  - Disorientation [Recovered/Resolved]
